FAERS Safety Report 7791323-7 (Version None)
Quarter: 2011Q4

REPORT INFORMATION
  Report Type: 
  Country: None (occurrence: None)
  Receive Date: 20111003
  Receipt Date: 20110920
  Transmission Date: 20120403
  Serious: No
  Sender: FDA-Public Use
  Company Number: US-BIOGENIDEC-2011BI036228

PATIENT
  Sex: Female

DRUGS (2)
  1. AVONEX [Suspect]
     Indication: MULTIPLE SCLEROSIS
     Route: 030
  2. AVONEX [Suspect]
     Route: 030
     Dates: start: 19980101

REACTIONS (7)
  - ANKLE FRACTURE [None]
  - MUSCLE SPASMS [None]
  - DYSGRAPHIA [None]
  - DYSSTASIA [None]
  - LOSS OF CONTROL OF LEGS [None]
  - ABASIA [None]
  - FALL [None]
